FAERS Safety Report 5203416-9 (Version None)
Quarter: 2007Q1

REPORT INFORMATION
  Report Type: 
  Country: None (occurrence: None)
  Receive Date: 20070108
  Receipt Date: 20061227
  Transmission Date: 20070707
  Serious: Yes (Death, Other)
  Sender: FDA-Public Use
  Company Number: 2006-03302

PATIENT
  Age: 64 Year
  Sex: Male

DRUGS (1)
  1. VELCADE [Suspect]
     Indication: MULTIPLE MYELOMA
     Dosage: 1.30 MG/M2, UNK, INTRAVENOUS
     Route: 042

REACTIONS (3)
  - CRYPTOGENIC ORGANISING PNEUMONIA [None]
  - LUNG INJURY [None]
  - SEPSIS [None]
